FAERS Safety Report 12400922 (Version 1)
Quarter: 2016Q2

REPORT INFORMATION
  Report Type: Spontaneous
  Country: US (occurrence: None)
  Receive Date: 20160524
  Receipt Date: 20160524
  Transmission Date: 20160815
  Serious: No
  Sender: FDA-Public Use
  Company Number: None

PATIENT
  Age: 54 Year
  Sex: Female
  Weight: 81.65 kg

DRUGS (1)
  1. ACYCLOVIR CAMBER PHARMCEUTICAL [Suspect]
     Active Substance: ACYCLOVIR
     Indication: ORAL HERPES
     Dosage: 15
     Route: 048
     Dates: start: 20160209, end: 20160213

REACTIONS (2)
  - Oral herpes [None]
  - Disease progression [None]

NARRATIVE: CASE EVENT DATE: 20160209
